FAERS Safety Report 9841712 (Version 1)
Quarter: 2013Q4

REPORT INFORMATION
  Report Type: Spontaneous
  Country: US (occurrence: None)
  Receive Date: 20131211
  Receipt Date: 20131211
  Transmission Date: 20140711
  Serious: Yes (Other)
  Sender: FDA-Public Use
  Company Number: ALL1-2012-02058

PATIENT
  Age: 63 Year
  Sex: Female
  Weight: 61.2 kg

DRUGS (4)
  1. VYVANSE (LISDEXAMFETAMINE DIMESYLATE) CAPSULE [Suspect]
     Indication: ATTENTION DEFICIT/HYPERACTIVITY DISORDER
     Dosage: 50 MG, 3-4 TIMES PER WEEK AS REQ^D, ORAL
     Route: 048
     Dates: start: 2011
  2. AMOXAPINE (AMOXAPINE) [Suspect]
     Route: 048
     Dates: start: 2011, end: 2012
  3. WELLBUTRIN (BUPROPION HYDROCHLORIDE) [Suspect]
     Route: 048
     Dates: start: 201202
  4. LEXAPRO (ESCITALOPRAM OXALATE) [Suspect]
     Route: 048
     Dates: start: 201202

REACTIONS (10)
  - Depression [None]
  - Chills [None]
  - Yawning [None]
  - Pyrexia [None]
  - Tremor [None]
  - Sluggishness [None]
  - Disturbance in attention [None]
  - Drug ineffective [None]
  - Drug prescribing error [None]
  - Product quality issue [None]
